FAERS Safety Report 20728591 (Version 1)
Quarter: 2022Q2

REPORT INFORMATION
  Report Type: Spontaneous
  Country: US (occurrence: US)
  Receive Date: 20220420
  Receipt Date: 20220420
  Transmission Date: 20220721
  Serious: No
  Sender: FDA-Public Use
  Company Number: US-drreddys-SPO/USA/22/0148929

PATIENT
  Age: 75 Year
  Sex: Male
  Weight: 92.25 kg

DRUGS (1)
  1. ICOSAPENT ETHYL [Suspect]
     Active Substance: ICOSAPENT ETHYL
     Indication: Blood cholesterol
     Dosage: 1 IN THE MORNING AND 1 AT NIGHT

REACTIONS (2)
  - Gout [Unknown]
  - Incorrect dose administered [Unknown]
